FAERS Safety Report 6521062-1 (Version None)
Quarter: 2009Q4

REPORT INFORMATION
  Report Type: 
  Country: None (occurrence: None)
  Receive Date: 20091229
  Receipt Date: 20091218
  Transmission Date: 20100525
  Serious: Yes (Other)
  Sender: FDA-Public Use
  Company Number: GR-ELI_LILLY_AND_COMPANY-GR200912004321

PATIENT
  Age: 60 Year
  Sex: Male

DRUGS (4)
  1. ZYPADHERA [Suspect]
     Indication: PSYCHOTIC DISORDER
     Dosage: 300 MG, EVERY 2 WEEKS
     Route: 030
     Dates: start: 20091113
  2. DEPAKINE CHRONO [Concomitant]
     Indication: PSYCHOTIC DISORDER
     Dosage: 500 MG, 2/D
     Route: 048
  3. CENTRAC [Concomitant]
     Indication: PSYCHOTIC DISORDER
     Dosage: 10 MG, DAILY (1/D)
     Route: 048
  4. PROSCAR [Concomitant]
     Indication: BENIGN PROSTATIC HYPERPLASIA
     Dosage: 5 MG, DAILY (1/D)
     Route: 048

REACTIONS (1)
  - DIPLOPIA [None]
